FAERS Safety Report 7505029 (Version 3)
Quarter: 2020Q4

REPORT INFORMATION
  Report Type: Spontaneous
  Country: BR (occurrence: BR)
  Receive Date: 20100728
  Receipt Date: 20201230
  Transmission Date: 20210114
  Serious: Yes (Hospitalization, Other)
  Sender: FDA-Public Use
  Company Number: PHHY2010BR32931

PATIENT
  Age: 28 Year
  Sex: Female

DRUGS (4)
  1. DAPSONE. [Suspect]
     Active Substance: DAPSONE
     Indication: LEPROSY
     Dosage: UNK
     Route: 065
  2. RIFAMPICIN [Suspect]
     Active Substance: RIFAMPIN
     Indication: LEPROSY
     Dosage: UNK
     Route: 065
  3. CLOFAZIMINE [Suspect]
     Active Substance: CLOFAZIMINE
     Indication: LEPROSY
     Dosage: UNK
     Route: 065
  4. BENZATHINE BENZYLPENICILLIN [Concomitant]
     Active Substance: PENICILLIN G BENZATHINE
     Indication: PRODUCT USED FOR UNKNOWN INDICATION
     Dosage: UNK
     Route: 065

REACTIONS (23)
  - Oropharyngeal pain [Unknown]
  - Headache [Unknown]
  - Chills [Unknown]
  - Blood fibrinogen increased [Unknown]
  - Bone marrow failure [Unknown]
  - Marrow hyperplasia [Unknown]
  - Abdominal pain lower [Unknown]
  - Agranulocytosis [Unknown]
  - Dehydration [Unknown]
  - Syncope [Unknown]
  - Lung disorder [Unknown]
  - Heart rate increased [Unknown]
  - Neutropenia [Unknown]
  - Pallor [Unknown]
  - Cardiac murmur [Unknown]
  - Tonsillar hypertrophy [Unknown]
  - Pyrexia [Unknown]
  - Abdominal pain upper [Unknown]
  - Hypotonia [Unknown]
  - General physical health deterioration [Unknown]
  - Oropharyngeal plaque [Unknown]
  - Dysphagia [Unknown]
  - Haemolytic anaemia [Unknown]
